FAERS Safety Report 4559978-8 (Version None)
Quarter: 2005Q1

REPORT INFORMATION
  Report Type: 
  Country: None (occurrence: None)
  Receive Date: 20050120
  Receipt Date: 20050120
  Transmission Date: 20050727
  Serious: Yes (Other)
  Sender: FDA-Public Use
  Company Number: None

PATIENT
  Age: 61 Year
  Sex: Female
  Weight: 90.7194 kg

DRUGS (1)
  1. GABAPENTIN 700 MG /D [Suspect]
     Indication: MAJOR DEPRESSION
     Dosage: 300 MG Q AM, 400 MG Q HS

REACTIONS (1)
  - STOMACH DISCOMFORT [None]
